FAERS Safety Report 18129924 (Version 1)
Quarter: 2020Q3

REPORT INFORMATION
  Report Type: Spontaneous
  Country: US (occurrence: US)
  Receive Date: 20200810
  Receipt Date: 20200810
  Transmission Date: 20201103
  Serious: No
  Sender: FDA-Public Use
  Company Number: US-PERRIGO-20US006791

PATIENT
  Age: 72 Year
  Sex: Female
  Weight: 86.17 kg

DRUGS (1)
  1. LORATADINE. [Suspect]
     Active Substance: LORATADINE
     Indication: SEASONAL ALLERGY
     Dosage: 1/2 TABLET TO 10 MG, QD, PRN
     Route: 048
     Dates: end: 20200507

REACTIONS (3)
  - Expired product administered [Recovered/Resolved]
  - Underdose [Recovered/Resolved]
  - Wrong technique in product usage process [Recovered/Resolved]

NARRATIVE: CASE EVENT DATE: 201908
